FAERS Safety Report 23453022 (Version 2)
Quarter: 2024Q2

REPORT INFORMATION
  Report Type: Report from Study
  Country: CA (occurrence: CA)
  Receive Date: 20240129
  Receipt Date: 20240408
  Transmission Date: 20240716
  Serious: Yes (Other)
  Sender: FDA-Public Use
  Company Number: CA-PFIZER INC-202400023666

PATIENT
  Age: 74 Year
  Sex: Male

DRUGS (1)
  1. RITUXIMAB [Suspect]
     Active Substance: RITUXIMAB
     Indication: Central nervous system vasculitis
     Dosage: 1000 MG
     Route: 042

REACTIONS (5)
  - White blood cell count decreased [Unknown]
  - Neutropenia [Unknown]
  - Infusion site reaction [Unknown]
  - Off label use [Unknown]
  - Product dose omission issue [Unknown]
